FAERS Safety Report 20435968 (Version 1)
Quarter: 2022Q1

REPORT INFORMATION
  Report Type: Spontaneous
  Country: GB (occurrence: GB)
  Receive Date: 20220207
  Receipt Date: 20220207
  Transmission Date: 20220424
  Serious: Yes (Hospitalization, Other)
  Sender: FDA-Public Use
  Company Number: GB-LDELTA-NLLD0037821

PATIENT
  Age: 54 Year
  Sex: Male

DRUGS (10)
  1. CARBOPLATIN [Suspect]
     Active Substance: CARBOPLATIN
     Indication: Lung squamous cell carcinoma stage III
     Dosage: UNKNOWN
     Route: 065
     Dates: start: 20220104
  2. PEMBROLIZUMAB [Suspect]
     Active Substance: PEMBROLIZUMAB
     Indication: Lung squamous cell carcinoma stage III
     Dosage: UNKNOWN
     Route: 065
     Dates: start: 20220104
  3. TAXOL [Suspect]
     Active Substance: PACLITAXEL
     Indication: Lung squamous cell carcinoma stage III
     Dosage: UNKNOWN
     Route: 065
     Dates: start: 20220104
  4. CLOZAPINE [Suspect]
     Active Substance: CLOZAPINE
     Indication: Schizophrenia
     Dosage: 200MG ONCE IN THE MORNING, 225MG ONCE AT NIGHT
     Route: 048
     Dates: start: 20041216, end: 20220115
  5. CLOZAPINE [Suspect]
     Active Substance: CLOZAPINE
     Dosage: (DOSE REDUCED FROM 275 MG AS DUE TO HE HAS STOPPED SMOKING AND IT WAS FOUND THAT HIS CLOZAPINE LEVEL
     Route: 048
     Dates: end: 20220115
  6. ATENOLOL [Concomitant]
     Active Substance: ATENOLOL
     Indication: Product used for unknown indication
     Route: 048
  7. ATORVASTATIN [Concomitant]
     Active Substance: ATORVASTATIN
     Indication: Product used for unknown indication
     Route: 065
  8. METFORMIN [Concomitant]
     Active Substance: METFORMIN HYDROCHLORIDE
     Indication: Product used for unknown indication
     Route: 065
  9. VALPROATE SODIUM [Concomitant]
     Active Substance: VALPROATE SODIUM
     Indication: Product used for unknown indication
     Route: 065
  10. SITAGLIPTIN [Concomitant]
     Active Substance: SITAGLIPTIN
     Indication: Product used for unknown indication
     Route: 065

REACTIONS (12)
  - Acute kidney injury [Recovered/Resolved]
  - Diarrhoea [Unknown]
  - Neutropenia [Unknown]
  - Leukopenia [Unknown]
  - White blood cell count decreased [Unknown]
  - Platelet count decreased [Unknown]
  - Blood albumin decreased [Unknown]
  - Haemoglobin decreased [Unknown]
  - Mean cell volume decreased [Unknown]
  - Blood potassium decreased [Unknown]
  - C-reactive protein increased [Unknown]
  - Blood disorder [Unknown]

NARRATIVE: CASE EVENT DATE: 20220101
